FAERS Safety Report 5156361-1 (Version None)
Quarter: 2006Q4

REPORT INFORMATION
  Report Type: 
  Country: None (occurrence: None)
  Receive Date: 20061122
  Receipt Date: 20061102
  Transmission Date: 20070319
  Serious: Yes (Hospitalization, Other)
  Sender: FDA-Public Use
  Company Number: JP-BRISTOL-MYERS SQUIBB COMPANY-13572474

PATIENT
  Age: 36 Year
  Sex: Female

DRUGS (7)
  1. ABILIFY [Suspect]
     Indication: SCHIZOPHRENIA
     Dosage: 05-OCT-2006 6 MG QD; 11-OCT-2006 DOSE INCREASED TO 12MG/DAY
     Route: 048
     Dates: start: 20061005, end: 20061025
  2. RISPERIDONE [Concomitant]
     Indication: SCHIZOPHRENIA
     Dosage: DOSE 9 MG, DECREASED TO 6MG ON 5-OCT-06, DECREASED TO 2 MG ON 11 OCT-06
     Route: 048
     Dates: start: 20060901, end: 20061010
  3. LEVOMEPROMAZINE MALEATE [Concomitant]
     Indication: SCHIZOPHRENIA
     Dosage: 10 MG SEP/2006-02/OCT/2006; 03/OCT/2006-UNKNOWN 5 MG.
     Route: 048
     Dates: start: 20060901
  4. FLUNITRAZEPAM [Concomitant]
     Indication: INSOMNIA
     Route: 048
     Dates: start: 20060927
  5. BIPERIDEN HYDROCHLORIDE TAB [Concomitant]
     Indication: EXTRAPYRAMIDAL DISORDER
     Route: 048
     Dates: start: 20060927
  6. ETIZOLAM [Concomitant]
     Indication: INSOMNIA
     Route: 048
     Dates: start: 20061005
  7. SENNOSIDE [Concomitant]
     Indication: CONSTIPATION
     Route: 048
     Dates: start: 20060927

REACTIONS (1)
  - GRAND MAL CONVULSION [None]
